FAERS Safety Report 7462310-3 (Version None)
Quarter: 2011Q2

REPORT INFORMATION
  Report Type: 
  Country: None (occurrence: None)
  Receive Date: 20110506
  Receipt Date: 20110502
  Transmission Date: 20111010
  Serious: Yes (Hospitalization, Other)
  Sender: FDA-Public Use
  Company Number: US-ABBOTT-11P-163-0723316-00

PATIENT
  Age: 63 Year
  Sex: Female

DRUGS (12)
  1. LASIX [Concomitant]
  2. METHOTREXATE [Concomitant]
     Indication: PRODUCT USED FOR UNKNOWN INDICATION
     Route: 050
  3. VITAMIN C [Concomitant]
     Indication: PRODUCT USED FOR UNKNOWN INDICATION
  4. FOLIC ACID [Concomitant]
     Indication: PRODUCT USED FOR UNKNOWN INDICATION
  5. HUMIRA [Suspect]
  6. ARAVA [Concomitant]
     Indication: RHEUMATOID ARTHRITIS
  7. HUMIRA [Suspect]
     Indication: RHEUMATOID ARTHRITIS
  8. PREDNISONE [Concomitant]
     Indication: PRODUCT USED FOR UNKNOWN INDICATION
  9. TUMS [Concomitant]
     Indication: PRODUCT USED FOR UNKNOWN INDICATION
  10. POTASSIUM [Concomitant]
     Indication: PRODUCT USED FOR UNKNOWN INDICATION
  11. LASIX [Concomitant]
     Indication: OEDEMA PERIPHERAL
  12. HYDROCODONE BITARTRATE [Concomitant]
     Indication: PAIN

REACTIONS (5)
  - CELLULITIS [None]
  - ARTHRALGIA [None]
  - PYREXIA [None]
  - BENIGN LUNG NEOPLASM [None]
  - SINUSITIS [None]
